FAERS Safety Report 6999508-4 (Version None)
Quarter: 2010Q3

REPORT INFORMATION
  Report Type: 
  Country: None (occurrence: None)
  Receive Date: 20100920
  Receipt Date: 20070619
  Transmission Date: 20110219
  Serious: Yes (Other)
  Sender: FDA-Public Use
  Company Number: US-ASTRAZENECA-2006UW24565

PATIENT
  Sex: Female
  Weight: 109.8 kg

DRUGS (15)
  1. SEROQUEL [Suspect]
     Indication: SCHIZOPHRENIA
     Dosage: 25 TO 200 MG
     Route: 048
     Dates: start: 20040304
  2. SEROQUEL [Suspect]
     Indication: BIPOLAR DISORDER
     Dosage: 25 TO 200 MG
     Route: 048
     Dates: start: 20040304
  3. SEROQUEL [Suspect]
     Indication: DEPRESSION
     Dosage: 25 TO 200 MG
     Route: 048
     Dates: start: 20040304
  4. SEROQUEL [Suspect]
     Indication: ANXIETY
     Dosage: 25 TO 200 MG
     Route: 048
     Dates: start: 20040304
  5. ZYPREXA [Suspect]
     Indication: ANXIETY DISORDER
     Dates: start: 20030919
  6. GEODON [Concomitant]
     Dates: start: 20060501
  7. THORAZINE [Concomitant]
  8. EFFEXOR [Concomitant]
     Indication: DEPRESSION
     Dosage: 37.5 TO 75 MG, ONCE DAILY
     Dates: start: 20021209
  9. EFFEXOR [Concomitant]
     Indication: ANXIETY
     Dosage: 37.5 TO 75 MG, ONCE DAILY
     Dates: start: 20021209
  10. XANAX [Concomitant]
     Dosage: 0.5 MG TO 2 MG
     Dates: start: 20000519
  11. TOPROL-XL [Concomitant]
     Dates: start: 20030102
  12. ALBUTEROL [Concomitant]
     Indication: ASTHMA
     Dosage: 2 TO 3 PUFFS AT NIGHT, DAILY
     Route: 055
     Dates: start: 20021209
  13. VALTREX [Concomitant]
     Indication: HERPES VIRUS INFECTION
     Dates: start: 20021209
  14. LOTENSIN [Concomitant]
     Dates: start: 20021209
  15. MAXZIDE [Concomitant]
     Dosage: 50/75, ONCE IN MORNING, TWICE DAILY
     Dates: start: 20021209

REACTIONS (3)
  - DIABETES MELLITUS [None]
  - NEUROLEPTIC MALIGNANT SYNDROME [None]
  - PANCREATITIS [None]
